FAERS Safety Report 9471919 (Version 5)
Quarter: 2013Q4

REPORT INFORMATION
  Report Type: Spontaneous
  Country: US (occurrence: US)
  Receive Date: 20130823
  Receipt Date: 20131029
  Transmission Date: 20140711
  Serious: Yes (Life-Threatening, Hospitalization, Other)
  Sender: FDA-Public Use
  Company Number: US-AMGEN-USASP2013058811

PATIENT
  Age: 47 Year
  Sex: Female

DRUGS (14)
  1. PROCRIT [Suspect]
     Indication: ANAEMIA
     Dosage: 10000 UNIT, 4 TIMES/WK
     Route: 058
     Dates: start: 20111013
  2. TEMAZEPAM [Concomitant]
     Dosage: 15 MG, UNK
     Route: 048
  3. FUROSEMIDE [Concomitant]
     Dosage: 40 MG, QD
     Route: 048
  4. SODIUM BICARBONATE [Concomitant]
     Dosage: UNK UNK, QD
     Route: 048
  5. VITAMIN B COMPLEX [Concomitant]
     Dosage: UNK UNK, QD
     Route: 048
  6. RESTORIL                           /00054301/ [Concomitant]
     Dosage: 15 MG, AS NECESSARY
     Route: 048
  7. CELLCEPT                           /01275102/ [Concomitant]
     Dosage: 250 MG, BID
     Route: 048
  8. ATENOLOL [Concomitant]
     Dosage: 25 MG, QD
     Route: 048
  9. ARMOUR THYROID [Concomitant]
     Dosage: 60 MG, QD
     Route: 048
  10. WARFARIN SODIUM [Concomitant]
     Dosage: 5 MG, QD
     Route: 048
  11. PROGRAF [Concomitant]
     Dosage: 1 MG, BID
     Route: 048
  12. PREDNISONE [Concomitant]
     Dosage: 5 MG, QD
     Route: 048
  13. PRAVASTATIN SODIUM [Concomitant]
     Dosage: 40 MG, QD
     Route: 048
  14. AMLODIPINE BESYLATE [Concomitant]
     Dosage: 5 MG, QD
     Route: 048

REACTIONS (3)
  - Anaemia [Not Recovered/Not Resolved]
  - Drug ineffective [Not Recovered/Not Resolved]
  - Red blood cell count abnormal [Unknown]
